FAERS Safety Report 26112396 (Version 2)
Quarter: 2025Q4

REPORT INFORMATION
  Report Type: Spontaneous
  Country: US (occurrence: US)
  Receive Date: 20251202
  Receipt Date: 20251204
  Transmission Date: 20260118
  Serious: Yes (Hospitalization, Other)
  Sender: PFIZER
  Company Number: US-PFIZER INC-PV202500137786

PATIENT
  Age: 44 Year
  Sex: Female

DRUGS (13)
  1. FLUCONAZOLE [Interacting]
     Active Substance: FLUCONAZOLE
     Indication: Fungaemia
     Dosage: UNK
  2. CLOZAPINE [Interacting]
     Active Substance: CLOZAPINE
     Indication: Schizoaffective disorder bipolar type
     Dosage: 500 MG, 1X/DAY (TOTAL DAILY)
  3. CLOZAPINE [Interacting]
     Active Substance: CLOZAPINE
     Dosage: 125 MG, DAILY (REDUCTION)
  4. CLOZAPINE [Interacting]
     Active Substance: CLOZAPINE
     Dosage: 25 MG, 1X/DAY (DAILY (OHS)
  5. CLOZAPINE [Interacting]
     Active Substance: CLOZAPINE
     Dosage: 300 MG, 1X/DAY (DAILY (RE-TITRATED TO))
  6. PROPRANOLOL [Interacting]
     Active Substance: PROPRANOLOL HYDROCHLORIDE
     Indication: Schizoaffective disorder bipolar type
     Dosage: 60 MG, 1X/DAY
  7. PROPRANOLOL [Interacting]
     Active Substance: PROPRANOLOL HYDROCHLORIDE
     Dosage: UNK (RE-INITIATION)
  8. PALIPERIDONE PALMITATE [Concomitant]
     Active Substance: PALIPERIDONE PALMITATE
     Indication: Schizoaffective disorder bipolar type
     Dosage: 156 MG, MONTHLY (156 MG LAI MONTHLY)
  9. DULOXETINE [Concomitant]
     Active Substance: DULOXETINE
     Indication: Schizoaffective disorder bipolar type
     Dosage: 120 MG, 1X/DAY
  10. LORAZEPAM [Concomitant]
     Active Substance: LORAZEPAM
     Indication: Schizoaffective disorder bipolar type
     Dosage: 1 MG, 3X/DAY (TID; EVERY 8 HOURS)
  11. LUMATEPERONE [Concomitant]
     Active Substance: LUMATEPERONE
     Indication: Schizoaffective disorder bipolar type
     Dosage: 21 MG, 1X/DAY
  12. VENLAFAXINE [Concomitant]
     Active Substance: VENLAFAXINE HYDROCHLORIDE
     Indication: Schizoaffective disorder bipolar type
     Dosage: 112.5 MG, 1X/DAY
  13. BENZTROPINE [Concomitant]
     Active Substance: BENZTROPINE
     Indication: Schizoaffective disorder bipolar type
     Dosage: 0.5 MG, 2X/DAY (BID; EVERY 12 HOURS)

REACTIONS (1)
  - Drug interaction [Unknown]
